FAERS Safety Report 8767055 (Version 1)
Quarter: 2012Q4

REPORT INFORMATION
  Report Type: 
  Country: BR (occurrence: BR)
  Receive Date: 20120904
  Receipt Date: 20120904
  Transmission Date: 20130627
  Serious: Yes (Other)
  Sender: FDA-Public Use
  Company Number: PHHY2012BR074859

PATIENT
  Age: 69 Year

DRUGS (6)
  1. METFORMIN [Suspect]
     Indication: DIABETES MELLITUS
     Dosage: 1 DF, BID
     Dates: start: 2011
  2. GLIMEPIRIDE [Suspect]
     Indication: DIABETES MELLITUS
     Dosage: 2 mg, BID
     Route: 048
  3. GLIMEPIRIDE [Suspect]
     Dosage: 4 mg, QD
     Route: 048
  4. MORITAN [Suspect]
     Dosage: 100 mg, UNK
     Dates: start: 2008
  5. GALVUS [Concomitant]
     Indication: DIABETES MELLITUS
     Dosage: 2 DF, (1 tablet after breakfast and 1 tablet after dinner)
     Dates: start: 2010
  6. INSULIN [Concomitant]

REACTIONS (9)
  - Blindness [Unknown]
  - Cataract [Unknown]
  - Retinal haemorrhage [Unknown]
  - Glaucoma [Unknown]
  - Abdominal distension [Unknown]
  - Headache [Unknown]
  - Vomiting [Unknown]
  - Diarrhoea [Unknown]
  - Hypertension [Unknown]
